FAERS Safety Report 26196551 (Version 1)
Quarter: 2025Q4

REPORT INFORMATION
  Report Type: Spontaneous
  Country: US (occurrence: US)
  Receive Date: 20251224
  Receipt Date: 20251224
  Transmission Date: 20260117
  Serious: Yes (Other)
  Sender: AMPHASTAR
  Company Number: US-Amphastar Pharmaceuticals, Inc.-2190737

PATIENT
  Sex: Female

DRUGS (1)
  1. BAQSIMI [Suspect]
     Active Substance: GLUCAGON
     Indication: Hypoglycaemia

REACTIONS (2)
  - Drug ineffective [Unknown]
  - Vomiting [Unknown]
